FAERS Safety Report 6598712-7 (Version None)
Quarter: 2010Q1

REPORT INFORMATION
  Report Type: 
  Country: None (occurrence: None)
  Receive Date: 20100224
  Receipt Date: 20100105
  Transmission Date: 20100710
  Serious: Yes (Death)
  Sender: FDA-Public Use
  Company Number: US-TYCO HEALTHCARE/MALLINCKRODT-T201000475

PATIENT
  Age: 53 Year
  Sex: Male

DRUGS (5)
  1. TEMAZEPAM [Suspect]
     Route: 048
  2. ESCITALOPRAM [Suspect]
     Route: 048
  3. DULOXETINE HYDROCHLORIDE [Suspect]
     Route: 048
  4. ZOLPIDEM [Suspect]
     Route: 048
  5. ETHANOL [Suspect]
     Route: 048

REACTIONS (1)
  - COMPLETED SUICIDE [None]
